FAERS Safety Report 9228487 (Version 1)
Quarter: 2013Q2

REPORT INFORMATION
  Report Type: Spontaneous
  Country: US (occurrence: None)
  Receive Date: 20130411
  Receipt Date: 20130411
  Transmission Date: 20140414
  Serious: No
  Sender: FDA-Public Use
  Company Number: None

PATIENT
  Age: 67 Year
  Sex: Male

DRUGS (2)
  1. PEGASYS [Suspect]
     Indication: HEPATITIS C
     Dosage: 180MCG  WEEKLY  SUBCUTANEOUS
     Route: 058
     Dates: start: 20130218, end: 20130324
  2. RIBAVIRIN [Suspect]
     Indication: HEPATITIS C
     Dosage: 600MG  TWICE A DAY  PO
     Route: 048
     Dates: start: 20130218, end: 20130324

REACTIONS (6)
  - Visual impairment [None]
  - Dizziness [None]
  - Asthenia [None]
  - Stomatitis [None]
  - Headache [None]
  - Rash [None]
